FAERS Safety Report 8908199 (Version 1)
Quarter: 2012Q4

REPORT INFORMATION
  Report Type: 
  Country: BR (occurrence: BR)
  Receive Date: 20121114
  Receipt Date: 20121114
  Transmission Date: 20130627
  Serious: Yes (Hospitalization)
  Sender: FDA-Public Use
  Company Number: BR-ASTRAZENECA-2012SE84564

PATIENT
  Age: 53 Year
  Sex: Female
  Weight: 44 kg

DRUGS (5)
  1. NEXIUM [Suspect]
     Indication: HIATUS HERNIA
     Route: 048
     Dates: start: 201208
  2. UNKNOWN [Concomitant]
     Indication: ANAEMIA
     Dosage: WEEKLY
     Route: 058
     Dates: start: 1997
  3. B COMPLEX VITAMIN [Concomitant]
     Route: 048
     Dates: start: 1997
  4. RENAGEL [Concomitant]
     Indication: RENAL FAILURE
     Route: 048
     Dates: start: 1997
  5. ALBUMIN [Concomitant]
     Indication: RENAL FAILURE
     Route: 048
     Dates: start: 1997

REACTIONS (1)
  - Myocardial infarction [Recovered/Resolved]
